FAERS Safety Report 5342087-8 (Version None)
Quarter: 2007Q2

REPORT INFORMATION
  Report Type: 
  Country: None (occurrence: None)
  Receive Date: 20070601
  Receipt Date: 20070524
  Transmission Date: 20071010
  Serious: Yes (Hospitalization, Other)
  Sender: FDA-Public Use
  Company Number: AT-ASTRAZENECA-2007PK01055

PATIENT
  Age: 23829 Day
  Sex: Female
  Weight: 83 kg

DRUGS (3)
  1. ARIMIDEX [Suspect]
     Indication: BREAST CANCER FEMALE
     Route: 048
     Dates: start: 20050705
  2. EUTHYROX [Concomitant]
     Indication: HYPOTHYROIDISM
  3. FOSAMAX [Concomitant]
     Indication: OSTEOPOROSIS

REACTIONS (1)
  - INTERVERTEBRAL DISC PROTRUSION [None]
